FAERS Safety Report 8420177-0 (Version None)
Quarter: 2012Q2

REPORT INFORMATION
  Report Type: 
  Country: None (occurrence: None)
  Receive Date: 20120323
  Receipt Date: 20111215
  Transmission Date: 20120825
  Serious: Yes (Hospitalization, Other)
  Sender: FDA-Public Use
  Company Number: 163-21880-11121315

PATIENT
  Age: 84 Year
  Sex: Female
  Weight: 57.6068 kg

DRUGS (1)
  1. REVLIMID [Suspect]
     Indication: MYELODYSPLASTIC SYNDROME
     Dosage: 5 MG, MONDAY, WEDNESDAY, AND FRIDAY, PO
     Route: 048
     Dates: start: 20111013

REACTIONS (2)
  - FULL BLOOD COUNT DECREASED [None]
  - ABASIA [None]
